FAERS Safety Report 11276775 (Version 1)
Quarter: 2015Q3

REPORT INFORMATION
  Report Type: Spontaneous
  Country: US (occurrence: None)
  Receive Date: 20150715
  Receipt Date: 20150715
  Transmission Date: 20151125
  Serious: Yes (Other)
  Sender: FDA-Public Use
  Company Number: None

PATIENT
  Age: 59 Year
  Sex: Female
  Weight: 48.08 kg

DRUGS (3)
  1. SUPREP BOWEL PREP [Suspect]
     Active Substance: MAGNESIUM SULFATE\POTASSIUM SULFATE\SODIUM SULFATE
     Indication: COLONOSCOPY
     Dosage: 2 DOSES
     Route: 048
     Dates: start: 20150709, end: 20150709
  2. KROGER WOMEN^S DAILY MULTI-VITAMIN WITH VITAMIN D AND CALCIUM [Concomitant]
  3. CITRACAL SLOW RELEASE 1200 WITH VITAMIN D3 [Concomitant]

REACTIONS (2)
  - Constipation [None]
  - Dehydration [None]

NARRATIVE: CASE EVENT DATE: 20150709
